FAERS Safety Report 5097754-0 (Version None)
Quarter: 2006Q3

REPORT INFORMATION
  Report Type: 
  Country: None (occurrence: None)
  Receive Date: 20060829
  Receipt Date: 20060822
  Transmission Date: 20061208
  Serious: Yes (Death, Disabling)
  Sender: FDA-Public Use
  Company Number: WAES 0503USA02487

PATIENT
  Age: 63 Year
  Sex: Female

DRUGS (4)
  1. FOSAMAX [Suspect]
     Indication: BONE CANCER METASTATIC
     Dosage: 10 MG/Q2W
     Route: 042
     Dates: start: 19990603, end: 20020711
  2. ARIMIDEX [Concomitant]
  3. FURTULON [Concomitant]
  4. FADROZOLE HCL [Concomitant]

REACTIONS (13)
  - BONE DISORDER [None]
  - BREAST CANCER METASTATIC [None]
  - FISTULA [None]
  - GINGIVAL SWELLING [None]
  - IMPAIRED HEALING [None]
  - METASTASES TO BONE [None]
  - METASTASES TO LIVER [None]
  - OSTEONECROSIS [None]
  - PURULENT DISCHARGE [None]
  - RECURRENT CANCER [None]
  - TOOTH DISORDER [None]
  - TOOTH EXTRACTION [None]
  - WOUND SECRETION [None]
